FAERS Safety Report 5987299-5 (Version None)
Quarter: 2008Q4

REPORT INFORMATION
  Report Type: 
  Country: None (occurrence: None)
  Receive Date: 20081203
  Receipt Date: 20081118
  Transmission Date: 20090506
  Serious: Yes (Life-Threatening)
  Sender: FDA-Public Use
  Company Number: IDA-00148

PATIENT
  Age: 35 Year
  Sex: Female

DRUGS (2)
  1. AVLOCARDYL (PROPRANOLOL) [Suspect]
     Indication: PALPITATIONS
     Dosage: ORAL
     Route: 048
  2. ZOMIG [Concomitant]

REACTIONS (5)
  - BLOOD PRESSURE DECREASED [None]
  - BRADYCARDIA [None]
  - CHEST PAIN [None]
  - DYSPEPSIA [None]
  - PARAESTHESIA [None]
